FAERS Safety Report 9447381 (Version 1)
Quarter: 2013Q3

REPORT INFORMATION
  Report Type: Spontaneous
  Country: US (occurrence: US)
  Receive Date: 20130808
  Receipt Date: 20130808
  Transmission Date: 20140515
  Serious: No
  Sender: FDA-Public Use
  Company Number: US-009507513-1308USA002882

PATIENT
  Age: 68 Year
  Sex: Male

DRUGS (2)
  1. ZETIA [Suspect]
     Dosage: UNK
     Dates: start: 2009
  2. UNSPECIFIED INGREDIENT [Suspect]
     Dosage: UNK
     Dates: start: 2009

REACTIONS (3)
  - Abdominal distension [Recovered/Resolved]
  - Abdominal distension [Unknown]
  - Abdominal discomfort [Recovered/Resolved]
